FAERS Safety Report 8266270-7 (Version None)
Quarter: 2012Q2

REPORT INFORMATION
  Report Type: 
  Country: None (occurrence: None)
  Receive Date: 20120406
  Receipt Date: 20120329
  Transmission Date: 20120825
  Serious: Yes (Disabling)
  Sender: FDA-Public Use
  Company Number: ES-FRI-1000028765

PATIENT
  Age: 84 Year
  Sex: Male

DRUGS (4)
  1. NITROGLYCERIN [Concomitant]
     Dosage: 15 MG
     Route: 062
  2. ROFLUMILAST [Suspect]
     Dates: start: 20120110
  3. OMEPRAZOLE [Concomitant]
  4. ATENOLOL [Concomitant]
     Dosage: 0.5 DF

REACTIONS (1)
  - ASTHENIA [None]
